FAERS Safety Report 9233192 (Version 1)
Quarter: 2013Q1

REPORT INFORMATION
  Report Type: Spontaneous
  Country: US (occurrence: None)
  Receive Date: 20121031
  Receipt Date: 20121031
  Transmission Date: 20140127
  Serious: No
  Sender: FDA-Public Use
  Company Number: PHEH2012US014302

PATIENT
  Age: 45 Year
  Sex: Female

DRUGS (6)
  1. GILENYA [Suspect]
     Route: 048
  2. CRANBERRY CAPSULE, 1000MG [Concomitant]
  3. CYCLOBENZAPRINE (CYCLOBENZAPRINE) TABLET, 10MG [Concomitant]
  4. VITAMIN D (ERGOCALCIFEROL) TABLETS, 2000 IU [Concomitant]
  5. VITAMIN B12 (CYANOCOBALAMIN) [Concomitant]
  6. TYLENOL (PARACETAMOL0 [Concomitant]

REACTIONS (7)
  - Blister [None]
  - Vitamin D decreased [None]
  - Vitamin B12 decreased [None]
  - Blood iron decreased [None]
  - Rash [None]
  - Blood calcium decreased [None]
  - Headache [None]
